FAERS Safety Report 18198264 (Version 1)
Quarter: 2020Q3

REPORT INFORMATION
  Report Type: Spontaneous
  Country: US (occurrence: US)
  Receive Date: 20200826
  Receipt Date: 20200826
  Transmission Date: 20201103
  Serious: No
  Sender: FDA-Public Use
  Company Number: None

PATIENT
  Age: 63 Year
  Sex: Female

DRUGS (7)
  1. OTEZLA [Suspect]
     Active Substance: APREMILAST
     Indication: PSORIASIS
     Route: 048
     Dates: start: 20200704
  2. LEXAPRO [Concomitant]
     Active Substance: ESCITALOPRAM OXALATE
  3. PROBIOTIC [Concomitant]
     Active Substance: PROBIOTICS NOS
  4. PRILOSEC 20 MG [Concomitant]
  5. WELLBUTRIN [Concomitant]
     Active Substance: BUPROPION HYDROCHLORIDE
  6. MELOXICAM  15 MG [Concomitant]
     Active Substance: MELOXICAM
  7. LEXOTHYROXINE 0.05 MCG [Concomitant]

REACTIONS (4)
  - Nausea [None]
  - Headache [None]
  - Fatigue [None]
  - Frequent bowel movements [None]

NARRATIVE: CASE EVENT DATE: 20200819
